FAERS Safety Report 7221765-X (Version None)
Quarter: 2011Q1

REPORT INFORMATION
  Report Type: 
  Country: None (occurrence: None)
  Receive Date: 20110112
  Receipt Date: 20110104
  Transmission Date: 20110831
  Serious: Yes (Other)
  Sender: FDA-Public Use
  Company Number: US-RB-018578-11

PATIENT
  Age: 13 Year
  Sex: Female

DRUGS (1)
  1. MUCINEX [Suspect]

REACTIONS (2)
  - NO ADVERSE EVENT [None]
  - DRUG ABUSE [None]
